FAERS Safety Report 7090763-1 (Version None)
Quarter: 2010Q4

REPORT INFORMATION
  Report Type: 
  Country: None (occurrence: None)
  Receive Date: 20101012
  Receipt Date: 20100803
  Transmission Date: 20110411
  Serious: No
  Sender: FDA-Public Use
  Company Number: US_001248

PATIENT
  Sex: Male

DRUGS (1)
  1. KUVAN [Suspect]
     Indication: PHENYLKETONURIA
     Dosage: 10 MG/KG, FREQUENCY NOT REPORTED, ORAL (DOSE AND FREQUENCY NOT REPORTED ORAL)
     Route: 048

REACTIONS (2)
  - EAR PAIN [None]
  - RHINORRHOEA [None]
